FAERS Safety Report 9321625 (Version 1)
Quarter: 2013Q2

REPORT INFORMATION
  Report Type: Spontaneous
  Country: US (occurrence: US)
  Receive Date: 20130531
  Receipt Date: 20130531
  Transmission Date: 20140414
  Serious: Yes (Other)
  Sender: FDA-Public Use
  Company Number: US-AMGEN-USASP2013037284

PATIENT
  Age: 77 Year
  Sex: Female

DRUGS (5)
  1. EPOGEN [Suspect]
     Indication: NEPHROGENIC ANAEMIA
     Dosage: 10000 UNIT, 3 TIMES/WK
     Route: 042
     Dates: start: 201206
  2. ARANESP [Suspect]
     Indication: NEPHROGENIC ANAEMIA
     Dosage: UNK
     Route: 058
  3. LANTUS [Concomitant]
     Dosage: UNK
  4. VENOFER [Concomitant]
     Dosage: UNK
  5. OMONTYS [Concomitant]
     Dosage: 15 MG, UNK
     Route: 058
     Dates: start: 20130210

REACTIONS (3)
  - Anaemia [Unknown]
  - Treatment failure [Unknown]
  - Serum ferritin increased [Unknown]
